FAERS Safety Report 20373963 (Version 1)
Quarter: 2022Q1

REPORT INFORMATION
  Report Type: Spontaneous
  Country: US (occurrence: None)
  Receive Date: 20220125
  Receipt Date: 20220125
  Transmission Date: 20220423
  Serious: Yes (Congenital Anomaly, Other)
  Sender: FDA-Public Use
  Company Number: US-ROCHE-3000869

PATIENT
  Sex: Male

DRUGS (1)
  1. OCREVUS [Suspect]
     Active Substance: OCRELIZUMAB
     Indication: Product used for unknown indication
     Route: 065
     Dates: start: 201904, end: 201910

REACTIONS (4)
  - Hydronephrosis [Unknown]
  - Bladder dilatation [Unknown]
  - Urethral valves [Unknown]
  - Foetal exposure during pregnancy [Unknown]
